FAERS Safety Report 4507505-3 (Version None)
Quarter: 2004Q4

REPORT INFORMATION
  Report Type: 
  Country: None (occurrence: None)
  Receive Date: 20041123
  Receipt Date: 20041112
  Transmission Date: 20050328
  Serious: Yes (Hospitalization)
  Sender: FDA-Public Use
  Company Number: US-JNJFOC-20041103689

PATIENT
  Sex: Female

DRUGS (7)
  1. INFLIXIMAB [Suspect]
     Route: 042
  2. INFLIXIMAB [Suspect]
     Indication: RHEUMATOID ARTHRITIS
     Route: 042
  3. ACTONEL [Concomitant]
  4. PREDNISONE [Concomitant]
  5. TYLENOL [Concomitant]
  6. VICODIN [Concomitant]
  7. VICODIN [Concomitant]

REACTIONS (1)
  - BREAST CANCER [None]
